FAERS Safety Report 19283964 (Version 3)
Quarter: 2024Q2

REPORT INFORMATION
  Report Type: Spontaneous
  Country: BG (occurrence: BG)
  Receive Date: 20210520
  Receipt Date: 20240408
  Transmission Date: 20240716
  Serious: Yes (Hospitalization)
  Sender: FDA-Public Use
  Company Number: BG-CELLTRION INC.-2021BG006758

PATIENT

DRUGS (1)
  1. INFLIXIMAB [Suspect]
     Active Substance: INFLIXIMAB
     Indication: Crohn^s disease
     Dosage: 5 MG/KG
     Route: 065

REACTIONS (1)
  - Palmoplantar pustulosis [Unknown]
